FAERS Safety Report 10152668 (Version 4)
Quarter: 2016Q4

REPORT INFORMATION
  Report Type: Spontaneous
  Country: US (occurrence: US)
  Receive Date: 20140505
  Receipt Date: 20161209
  Transmission Date: 20170206
  Serious: Yes (Hospitalization, Other)
  Sender: FDA-Public Use
  Company Number: US-BAYER-2014-064715

PATIENT
  Age: 21 Year
  Sex: Female
  Weight: 97.51 kg

DRUGS (3)
  1. MIRENA [Suspect]
     Active Substance: LEVONORGESTREL
     Indication: CONTRACEPTION
     Dosage: 20 MCG/24HR, CONT
     Route: 015
     Dates: start: 20080717, end: 20120501
  2. AZITHROMYCIN ANHYDROUS. [Concomitant]
     Active Substance: AZITHROMYCIN ANHYDROUS
     Dosage: 1 GM
     Dates: start: 20120306
  3. MIRENA [Suspect]
     Active Substance: LEVONORGESTREL

REACTIONS (6)
  - Injury [None]
  - Uterine perforation [None]
  - Device breakage [None]
  - Pain [None]
  - Device issue [None]
  - Complication of device removal [None]

NARRATIVE: CASE EVENT DATE: 201204
